FAERS Safety Report 6689044-7 (Version None)
Quarter: 2010Q2

REPORT INFORMATION
  Report Type: 
  Country: None (occurrence: None)
  Receive Date: 20100420
  Receipt Date: 20100417
  Transmission Date: 20101027
  Serious: Yes (Death)
  Sender: FDA-Public Use
  Company Number: PHHY2010MX24433

PATIENT
  Age: 75 Year
  Sex: Male

DRUGS (1)
  1. ZOMETA [Suspect]
     Indication: HYPERCALCAEMIA
     Dosage: 4 MG/ 5 ML PER MONTH

REACTIONS (1)
  - MYOCARDIAL INFARCTION [None]
